FAERS Safety Report 13084949 (Version 1)
Quarter: 2017Q1

REPORT INFORMATION
  Report Type: Spontaneous
  Country: US (occurrence: US)
  Receive Date: 20170104
  Receipt Date: 20170104
  Transmission Date: 20170428
  Serious: Yes (Death, Other)
  Sender: FDA-Public Use
  Company Number: US-ENDO PHARMACEUTICALS INC.-2016-007532

PATIENT
  Age: 81 Year
  Sex: Male
  Weight: 74.91 kg

DRUGS (2)
  1. NEXIUM [Concomitant]
     Active Substance: ESOMEPRAZOLE MAGNESIUM
     Indication: BARRETT^S OESOPHAGUS
     Route: 065
  2. PRIMIDONE TABLETS 50MG [Suspect]
     Active Substance: PRIMIDONE
     Indication: TREMOR
     Route: 065
     Dates: start: 2015

REACTIONS (14)
  - Sleep disorder [Unknown]
  - Suicide attempt [Unknown]
  - Self-injurious ideation [Unknown]
  - Off label use [Unknown]
  - Contusion [Unknown]
  - Unevaluable event [Unknown]
  - Mood altered [Unknown]
  - Fatigue [Unknown]
  - Completed suicide [Fatal]
  - Somnolence [Unknown]
  - Abnormal behaviour [Unknown]
  - Depression [Unknown]
  - Suicidal ideation [Unknown]
  - Haemorrhage [Unknown]

NARRATIVE: CASE EVENT DATE: 2015
